FAERS Safety Report 17126554 (Version 1)
Quarter: 2019Q4

REPORT INFORMATION
  Report Type: Spontaneous
  Country: US (occurrence: US)
  Receive Date: 20191209
  Receipt Date: 20191209
  Transmission Date: 20200122
  Serious: No
  Sender: FDA-Public Use
  Company Number: US-UCBSA-2017014049

PATIENT
  Age: 58 Year
  Sex: Female

DRUGS (8)
  1. LAMICTAL [Suspect]
     Active Substance: LAMOTRIGINE
     Indication: EPILEPSY
     Dosage: 150 MG, 2X/DAY (BID)
     Route: 048
     Dates: start: 2012
  2. ONFI [Suspect]
     Active Substance: CLOBAZAM
     Indication: SEIZURE
     Dosage: 20 MG, 2X/DAY (BID)
     Route: 048
     Dates: start: 201403
  3. ONFI [Suspect]
     Active Substance: CLOBAZAM
     Indication: EPILEPSY
     Dosage: 30 MG, 2X/DAY (BID)
     Route: 048
     Dates: start: 201503
  4. ZONISAMIDE. [Suspect]
     Active Substance: ZONISAMIDE
     Indication: EPILEPSY
     Dosage: UNK
     Dates: start: 201307, end: 201403
  5. GABAPENTIN. [Suspect]
     Active Substance: GABAPENTIN
     Indication: SEIZURE
     Dosage: 1500 MG DAILY
     Dates: start: 201306, end: 201409
  6. NEURONTIN [Concomitant]
     Active Substance: GABAPENTIN
     Indication: PRODUCT USED FOR UNKNOWN INDICATION
  7. KEPPRA [Suspect]
     Active Substance: LEVETIRACETAM
     Indication: EPILEPSY
     Dosage: 500 MG, 2X/DAY (BID)
     Route: 048
     Dates: start: 201412
  8. CLONAZEPAM. [Suspect]
     Active Substance: CLONAZEPAM
     Indication: SEIZURE
     Dosage: 0.25 MG, 2X/DAY (BID)
     Route: 048
     Dates: start: 201303, end: 201306

REACTIONS (12)
  - Pruritus [Recovered/Resolved]
  - Generalised tonic-clonic seizure [Unknown]
  - Cerebral disorder [Unknown]
  - Intentional overdose [Unknown]
  - Facial bones fracture [Recovered/Resolved]
  - Depression [Unknown]
  - Memory impairment [Unknown]
  - Affective disorder [Unknown]
  - Hypersomnia [Unknown]
  - Weight increased [Unknown]
  - Seizure [Unknown]
  - Scar [Unknown]

NARRATIVE: CASE EVENT DATE: 2014
